FAERS Safety Report 11686207 (Version 1)
Quarter: 2015Q4

REPORT INFORMATION
  Report Type: Not Available
  Country: TN (occurrence: TN)
  Receive Date: 20151030
  Receipt Date: 20151030
  Transmission Date: 20160304
  Serious: Yes (Life-Threatening)
  Sender: FDA-Public Use
  Company Number: TN-ANIPHARMA-2015-TN-000001

PATIENT
  Age: 3 Month
  Sex: Male
  Weight: 6 kg

DRUGS (1)
  1. PROPRANOLOL HYDROCHLORIDE (NON-SPECIFIC) [Suspect]
     Active Substance: PROPRANOLOL HYDROCHLORIDE
     Dosage: 2 MG/KG DAILY
     Route: 048

REACTIONS (2)
  - Cardio-respiratory arrest [Unknown]
  - Bronchiolitis [Unknown]
